FAERS Safety Report 7010885-0 (Version None)
Quarter: 2010Q3

REPORT INFORMATION
  Report Type: 
  Country: None (occurrence: None)
  Receive Date: 20100923
  Receipt Date: 20100915
  Transmission Date: 20110219
  Serious: Yes (Death, Other)
  Sender: FDA-Public Use
  Company Number: US-AMGEN-US354780

PATIENT
  Sex: Male
  Weight: 89.1 kg

DRUGS (5)
  1. NPLATE [Suspect]
     Indication: IDIOPATHIC THROMBOCYTOPENIC PURPURA
     Route: 065
     Dates: start: 20090611, end: 20090625
  2. CORTICOSTEROIDS [Concomitant]
     Route: 065
  3. IMMU-G [Concomitant]
     Route: 065
     Dates: start: 20090601, end: 20090601
  4. DEXAMETHASONE [Concomitant]
  5. RITUXIMAB [Concomitant]
     Route: 065
     Dates: start: 20080801, end: 20090601

REACTIONS (2)
  - ACUTE MYELOID LEUKAEMIA [None]
  - DRUG INEFFECTIVE [None]
